FAERS Safety Report 19771677 (Version 1)
Quarter: 2021Q3

REPORT INFORMATION
  Report Type: Spontaneous
  Country: US (occurrence: US)
  Receive Date: 20210901
  Receipt Date: 20210901
  Transmission Date: 20211014
  Serious: No
  Sender: FDA-Public Use
  Company Number: None

PATIENT
  Age: 71 Year
  Sex: Female
  Weight: 58.5 kg

DRUGS (4)
  1. JARDIANCE [Suspect]
     Active Substance: EMPAGLIFLOZIN
     Indication: CARDIAC FAILURE
     Route: 048
     Dates: start: 20210818
  2. SPIRONOLACTON 25MG [Concomitant]
     Active Substance: SPIRONOLACTONE
     Dates: start: 20210423
  3. COVID 19 PFIZER VACCINE [Concomitant]
     Dates: start: 20210823, end: 20210823
  4. AZELASTINE NASAL SPRAY 1.1% [Concomitant]
     Dates: start: 20210315

REACTIONS (2)
  - Dizziness [None]
  - Malaise [None]

NARRATIVE: CASE EVENT DATE: 20210831
